FAERS Safety Report 8808643 (Version 1)
Quarter: 2012Q4

REPORT INFORMATION
  Report Type: 
  Country: US (occurrence: US)
  Receive Date: 20120926
  Receipt Date: 20120926
  Transmission Date: 20130627
  Serious: Yes (Other)
  Sender: FDA-Public Use
  Company Number: PHEH2012US018584

PATIENT
  Sex: Female

DRUGS (7)
  1. DIOVAN [Suspect]
  2. METFORMIN [Concomitant]
     Dosage: UNK UKN, UNK
  3. GLIMEPIRIDE [Concomitant]
     Dosage: UNK UKN, UNK
  4. ORENCIA [Concomitant]
     Dosage: UNK UKN, UNK
  5. METHOTREXATE [Concomitant]
     Dosage: UNK UKN, UNK
  6. OMEPRAZOLE [Concomitant]
     Dosage: UNK UKN, UNK
  7. HYDROCODONE [Concomitant]
     Dosage: UNK UKN, UNK

REACTIONS (2)
  - Diabetes mellitus [Unknown]
  - Nasopharyngitis [Unknown]
